FAERS Safety Report 10897507 (Version 2)
Quarter: 2015Q1

REPORT INFORMATION
  Report Type: Spontaneous
  Country: BR (occurrence: BR)
  Receive Date: 20150309
  Receipt Date: 20150320
  Transmission Date: 20150721
  Serious: Yes (Other)
  Sender: FDA-Public Use
  Company Number: BR-APOTEX-2015AP007201

PATIENT
  Age: 78 Year
  Sex: Female
  Weight: 29.93 kg

DRUGS (5)
  1. PURAN [Concomitant]
     Active Substance: LEVOTHYROXINE SODIUM
     Indication: HYPERTHYROIDISM
     Dosage: 50 MG, UNK
  2. PAXIL CR [Suspect]
     Active Substance: PAROXETINE HYDROCHLORIDE
     Indication: DEPRESSION
     Dosage: 25 MG, UNK
  3. PAXIL CR [Suspect]
     Active Substance: PAROXETINE HYDROCHLORIDE
     Dosage: 12.5 MG, TID
  4. FRONTAL [Concomitant]
     Active Substance: ALPRAZOLAM
     Indication: ANXIETY
     Dosage: 0.5 DF, Q.AM
  5. FRONTAL [Concomitant]
     Active Substance: ALPRAZOLAM
     Dosage: 1 DF, Q.H.S.

REACTIONS (10)
  - Ear infection bacterial [Unknown]
  - Breast calcifications [Unknown]
  - Vitamin B12 deficiency [Recovered/Resolved]
  - Wrong technique in drug usage process [Not Recovered/Not Resolved]
  - Ear disorder [Recovered/Resolved]
  - Bone disorder [Unknown]
  - Nausea [Recovered/Resolved]
  - Weight increased [Not Recovered/Not Resolved]
  - Headache [Unknown]
  - Blood pressure increased [Unknown]
